FAERS Safety Report 18279256 (Version 1)
Quarter: 2020Q3

REPORT INFORMATION
  Report Type: Other
  Country: US (occurrence: PT)
  Receive Date: 20200917
  Receipt Date: 20200917
  Transmission Date: 20201103
  Serious: Yes (Other)
  Sender: FDA-Public Use
  Company Number: PT-BRECKENRIDGE PHARMACEUTICAL, INC.-2090861

PATIENT
  Age: 9 Year
  Sex: Male

DRUGS (1)
  1. ACETAZOLAMIDE. [Suspect]
     Active Substance: ACETAZOLAMIDE
     Indication: IDIOPATHIC INTRACRANIAL HYPERTENSION
     Route: 048

REACTIONS (2)
  - Granuloma annulare [None]
  - Metabolic acidosis [None]
